FAERS Safety Report 9185468 (Version 2)
Quarter: 2013Q2

REPORT INFORMATION
  Report Type: Spontaneous
  Country: US (occurrence: US)
  Receive Date: 20130325
  Receipt Date: 20130503
  Transmission Date: 20140414
  Serious: Yes (Hospitalization)
  Sender: FDA-Public Use
  Company Number: US-BAYER-2013-036814

PATIENT
  Age: 23 Year
  Sex: Female

DRUGS (19)
  1. YAZ [Suspect]
     Indication: ACNE
  2. YASMIN [Suspect]
     Indication: ACNE
  3. OCELLA [Suspect]
     Indication: ACNE
  4. OXYCONTIN [Concomitant]
  5. XANAX [Concomitant]
  6. MORPHINE [Concomitant]
  7. OXYCODONE [Concomitant]
  8. ELAVIL [Concomitant]
  9. CITALOPRAM [Concomitant]
  10. SEROQUEL [Concomitant]
  11. PERCOCET [Concomitant]
  12. CELEXA [Concomitant]
  13. QUETIAPINE [Concomitant]
  14. DILAUDID [Concomitant]
  15. ATIVAN [Concomitant]
  16. ZOFRAN [Concomitant]
  17. ARIXTRA [Concomitant]
  18. FENTANYL [Concomitant]
  19. FIORICET [Concomitant]

REACTIONS (6)
  - Injury [None]
  - Pain [None]
  - Pain [None]
  - Pulmonary embolism [Recovered/Resolved]
  - Pelvic venous thrombosis [Recovered/Resolved]
  - Deep vein thrombosis [Recovered/Resolved]
